FAERS Safety Report 8714970 (Version 4)
Quarter: 2012Q4

REPORT INFORMATION
  Report Type: 
  Country: US (occurrence: US)
  Receive Date: 20120809
  Receipt Date: 20120917
  Transmission Date: 20130627
  Serious: Yes (Other)
  Sender: FDA-Public Use
  Company Number: PHEH2012US014127

PATIENT
  Age: 26 Year
  Sex: Male

DRUGS (14)
  1. AFINITOR [Suspect]
     Indication: ASTROCYTOMA, LOW GRADE
     Dosage: 10 mg, daily
     Route: 048
     Dates: start: 20120709, end: 20120904
  2. TRILEPTAL [Concomitant]
  3. HYDRAZIDE [Concomitant]
  4. VITAMINS NOS [Concomitant]
  5. VITAMIN E [Concomitant]
  6. VITAMIN D [Concomitant]
  7. KEPPRA [Concomitant]
  8. ALLEGRA [Concomitant]
  9. LISINOPRIL [Concomitant]
  10. FISH OIL [Concomitant]
  11. DHA [Concomitant]
  12. VIMPAT [Concomitant]
  13. MULTI-VIT [Concomitant]
  14. VENTOLIN [Concomitant]

REACTIONS (12)
  - Convulsion [Recovered/Resolved]
  - Sebaceous carcinoma [Unknown]
  - Second primary malignancy [Unknown]
  - Dermal cyst [Not Recovered/Not Resolved]
  - Pyrexia [Recovered/Resolved]
  - Diarrhoea [Unknown]
  - Stomatitis [Unknown]
  - Headache [Unknown]
  - Rash [Recovering/Resolving]
  - Oedema peripheral [Unknown]
  - Pain in extremity [Unknown]
  - Tenderness [Unknown]
